FAERS Safety Report 8234619-7 (Version None)
Quarter: 2012Q1

REPORT INFORMATION
  Report Type: 
  Country: None (occurrence: None)
  Receive Date: 20120326
  Receipt Date: 20120326
  Transmission Date: 20120608
  Serious: Yes (Death, Other)
  Sender: FDA-Public Use
  Company Number: JP-BAYER-2012-028825

PATIENT
  Age: 61 Year
  Sex: Male

DRUGS (1)
  1. ASPIRIN [Suspect]
     Dosage: UNK
     Route: 048
     Dates: start: 20100801, end: 20101101

REACTIONS (1)
  - LIVER DISORDER [None]
